FAERS Safety Report 17672061 (Version 2)
Quarter: 2020Q2

REPORT INFORMATION
  Report Type: Report from Study
  Country: US (occurrence: US)
  Receive Date: 20200415
  Receipt Date: 20200430
  Transmission Date: 20200713
  Serious: Yes (Hospitalization)
  Sender: FDA-Public Use
  Company Number: NVSC2020US100512

PATIENT
  Sex: Female

DRUGS (1)
  1. ENTRESTO [Suspect]
     Active Substance: SACUBITRIL\VALSARTAN
     Indication: CARDIAC FAILURE
     Dosage: 200 MG, (97/103) UNKNOWN
     Route: 048
     Dates: start: 2018

REACTIONS (8)
  - Cough [Recovering/Resolving]
  - Fatigue [Unknown]
  - Nasal congestion [Recovering/Resolving]
  - Hypotension [Unknown]
  - Dyspnoea exertional [Unknown]
  - Asthenia [Unknown]
  - Wheezing [Recovering/Resolving]
  - Feeling abnormal [Unknown]
